FAERS Safety Report 4291540-7 (Version None)
Quarter: 2004Q1

REPORT INFORMATION
  Report Type: 
  Country: None (occurrence: None)
  Receive Date: 20040211
  Receipt Date: 20040127
  Transmission Date: 20041129
  Serious: Yes (Death, Hospitalization)
  Sender: FDA-Public Use
  Company Number: PHBS2004CO01411

PATIENT
  Age: 50 Year
  Sex: Female

DRUGS (3)
  1. GLEEVEC [Suspect]
     Indication: CHRONIC MYELOID LEUKAEMIA
     Dosage: 400 MG/D
     Route: 048
     Dates: start: 20030701, end: 20031201
  2. GLEEVEC [Suspect]
     Dosage: 600 MG/D
     Route: 048
     Dates: start: 20031201, end: 20040124
  3. DRUG THERAPY NOS [Suspect]

REACTIONS (3)
  - ADVERSE DRUG REACTION [None]
  - CATHETER RELATED COMPLICATION [None]
  - SPINAL DISORDER [None]
